FAERS Safety Report 9321933 (Version 1)
Quarter: 2013Q2

REPORT INFORMATION
  Report Type: Spontaneous
  Country: US (occurrence: US)
  Receive Date: 20130531
  Receipt Date: 20130531
  Transmission Date: 20140414
  Serious: Yes (Other)
  Sender: FDA-Public Use
  Company Number: US-ABBOTT-13P-163-1093699-00

PATIENT
  Age: 56 Year
  Sex: Male
  Weight: 88.53 kg

DRUGS (7)
  1. HUMIRA [Suspect]
     Indication: AUTOIMMUNE ARTHRITIS
     Dates: start: 201203
  2. HUMIRA [Suspect]
     Indication: CROHN^S DISEASE
  3. POTASSIUM CITRATE [Concomitant]
     Indication: RENAL DISORDER
  4. SULFADIAZINE [Concomitant]
     Indication: PRODUCT USED FOR UNKNOWN INDICATION
  5. LISINOPRIL [Concomitant]
     Indication: BLOOD PRESSURE
  6. AMLODIPINE [Concomitant]
     Indication: BLOOD PRESSURE
  7. CITRACAL [Concomitant]
     Indication: RENAL DISORDER

REACTIONS (2)
  - Convulsion [Recovered/Resolved]
  - Off label use [Not Recovered/Not Resolved]
